FAERS Safety Report 13029083 (Version 2)
Quarter: 2016Q4

REPORT INFORMATION
  Report Type: Spontaneous
  Country: IT (occurrence: IT)
  Receive Date: 20161215
  Receipt Date: 20161228
  Transmission Date: 20170207
  Serious: Yes (Other)
  Sender: FDA-Public Use
  Company Number: IT-BAXTER-2016BAX061860

PATIENT
  Age: 71 Year
  Sex: Male
  Weight: 95 kg

DRUGS (22)
  1. TRIATEC [Concomitant]
     Active Substance: RAMIPRIL
     Indication: PRODUCT USED FOR UNKNOWN INDICATION
     Route: 065
  2. CARDIOASPIRIN [Concomitant]
     Active Substance: ASPIRIN
     Indication: PRODUCT USED FOR UNKNOWN INDICATION
     Route: 065
  3. DELTACORTENE [Concomitant]
     Active Substance: PREDNISONE
     Indication: PRODUCT USED FOR UNKNOWN INDICATION
     Route: 065
  4. SODIO CLORURO BAXTER S.P.A. 0,9% [Suspect]
     Active Substance: SODIUM CHLORIDE
     Dosage: PEMETREXED IN BAXTER BAGS
     Route: 065
     Dates: start: 20160517
  5. ONDANSETRON [Suspect]
     Active Substance: ONDANSETRON
     Indication: PRODUCT USED FOR UNKNOWN INDICATION
     Route: 042
     Dates: start: 20160404, end: 20160607
  6. DOBETIN [Concomitant]
     Active Substance: CYANOCOBALAMIN
     Indication: PRODUCT USED FOR UNKNOWN INDICATION
     Route: 065
  7. TORVAST [Concomitant]
     Active Substance: ATORVASTATIN
     Indication: PRODUCT USED FOR UNKNOWN INDICATION
     Route: 065
  8. SODIO CLORURO BAXTER S.P.A. 0,9% [Suspect]
     Active Substance: SODIUM CHLORIDE
     Indication: MEDICATION DILUTION
     Dosage: PEMETREXED IN BAXTER BAGS
     Route: 065
     Dates: start: 20160404
  9. SODIO CLORURO BAXTER S.P.A. 0,9% [Suspect]
     Active Substance: SODIUM CHLORIDE
     Dosage: PEMETREXED IN BAXTER BAGS
     Route: 065
     Dates: start: 20160426
  10. ALIMTA [Suspect]
     Active Substance: PEMETREXED DISODIUM
     Dosage: COMPOUNDED WITH SODIUM CHLORIDE
     Route: 065
     Dates: start: 20160426
  11. ALIMTA [Suspect]
     Active Substance: PEMETREXED DISODIUM
     Dosage: COMPOUNDED WITH SODIUM CHLORIDE
     Route: 065
     Dates: start: 20160517
  12. LEVOPRAID [Concomitant]
     Active Substance: SULPIRIDE
     Indication: PRODUCT USED FOR UNKNOWN INDICATION
     Route: 065
  13. TAVOR (LORAZEPAM) [Concomitant]
     Active Substance: LORAZEPAM
     Indication: PRODUCT USED FOR UNKNOWN INDICATION
     Route: 065
  14. ALIMTA [Suspect]
     Active Substance: PEMETREXED DISODIUM
     Route: 042
     Dates: start: 20160607
  15. PLAVIX [Concomitant]
     Active Substance: CLOPIDOGREL BISULFATE
     Indication: PRODUCT USED FOR UNKNOWN INDICATION
     Route: 065
  16. NORVASC [Concomitant]
     Active Substance: AMLODIPINE BESYLATE
     Indication: PRODUCT USED FOR UNKNOWN INDICATION
     Route: 065
  17. RANITIDINE. [Suspect]
     Active Substance: RANITIDINE
     Indication: PRODUCT USED FOR UNKNOWN INDICATION
     Route: 042
     Dates: start: 20160404, end: 20160607
  18. LANSOPRAZOLE. [Concomitant]
     Active Substance: LANSOPRAZOLE
     Indication: PRODUCT USED FOR UNKNOWN INDICATION
     Route: 065
  19. ALIMTA [Suspect]
     Active Substance: PEMETREXED DISODIUM
     Indication: PRODUCT USED FOR UNKNOWN INDICATION
     Dosage: COMPOUNDED WITH SODIUM CHLORIDE
     Route: 065
     Dates: start: 20160404
  20. CARBOPLATIN. [Suspect]
     Active Substance: CARBOPLATIN
     Indication: PRODUCT USED FOR UNKNOWN INDICATION
     Route: 042
     Dates: start: 20160404, end: 20160607
  21. DEXAMETHASONE. [Suspect]
     Active Substance: DEXAMETHASONE
     Indication: PRODUCT USED FOR UNKNOWN INDICATION
     Route: 042
     Dates: start: 20160404, end: 20160607
  22. EUTIROX [Concomitant]
     Active Substance: LEVOTHYROXINE SODIUM
     Indication: PRODUCT USED FOR UNKNOWN INDICATION
     Route: 065

REACTIONS (1)
  - Renal failure [Unknown]

NARRATIVE: CASE EVENT DATE: 20160607
